FAERS Safety Report 10434097 (Version 2)
Quarter: 2014Q4

REPORT INFORMATION
  Report Type: Spontaneous
  Country: US (occurrence: US)
  Receive Date: 20140905
  Receipt Date: 20141226
  Transmission Date: 20150528
  Serious: Yes (Hospitalization, Other)
  Sender: FDA-Public Use
  Company Number: US-SA-2014SA118752

PATIENT
  Age: 66 Year
  Sex: Male

DRUGS (10)
  1. PLAVIX [Suspect]
     Active Substance: CLOPIDOGREL BISULFATE
     Indication: ACUTE CORONARY SYNDROME
     Route: 065
     Dates: start: 20020917, end: 20060728
  2. NICOTINIC ACID [Concomitant]
     Active Substance: NIACIN
  3. ASPIRIN. [Concomitant]
     Active Substance: ASPIRIN
  4. GLUCOVANCE [Concomitant]
     Active Substance: GLYBURIDE\METFORMIN HYDROCHLORIDE
     Dosage: 5/500
  5. LISINOPRIL. [Concomitant]
     Active Substance: LISINOPRIL
     Route: 048
  6. COREG [Concomitant]
     Active Substance: CARVEDILOL
  7. ZOCOR [Concomitant]
     Active Substance: SIMVASTATIN
     Route: 048
  8. CLONIDINE. [Concomitant]
     Active Substance: CLONIDINE
     Dosage: 2 TABLETS AT NIGHT
  9. PEPCID [Concomitant]
     Active Substance: FAMOTIDINE
     Route: 048
  10. DIGOXIN. [Concomitant]
     Active Substance: DIGOXIN
     Dosage: 0.25
     Route: 048

REACTIONS (2)
  - Injury [Unknown]
  - Gastrointestinal haemorrhage [Unknown]

NARRATIVE: CASE EVENT DATE: 20060728
